FAERS Safety Report 7218764-0 (Version None)
Quarter: 2011Q1

REPORT INFORMATION
  Report Type: 
  Country: None (occurrence: None)
  Receive Date: 20110110
  Receipt Date: 20100408
  Transmission Date: 20110831
  Serious: No
  Sender: FDA-Public Use
  Company Number: US-ABBOTT-10P-163-0638545-00

PATIENT
  Sex: Female
  Weight: 68.1 kg

DRUGS (1)
  1. VICODIN [Suspect]
     Indication: FOOT OPERATION

REACTIONS (2)
  - HEADACHE [None]
  - DIZZINESS [None]
